FAERS Safety Report 5663271-X (Version None)
Quarter: 2008Q1

REPORT INFORMATION
  Report Type: 
  Country: None (occurrence: None)
  Receive Date: 20080313
  Receipt Date: 20080303
  Transmission Date: 20080703
  Serious: Yes (Hospitalization, Other)
  Sender: FDA-Public Use
  Company Number: GB-PFIZER INC-2008021937

PATIENT
  Sex: Male

DRUGS (1)
  1. VARENICLINE [Suspect]

REACTIONS (1)
  - HEMIPLEGIA [None]
